FAERS Safety Report 4748152-8 (Version None)
Quarter: 2005Q3

REPORT INFORMATION
  Report Type: 
  Country: None (occurrence: None)
  Receive Date: 20050818
  Receipt Date: 20041203
  Transmission Date: 20060218
  Serious: No
  Sender: FDA-Public Use
  Company Number: US-GLAXOSMITHKLINE-A0536172A

PATIENT
  Age: 67 Year
  Sex: Female
  Weight: 114.1 kg

DRUGS (5)
  1. STELAZINE [Suspect]
     Indication: PAIN
     Dosage: 2MG UNKNOWN
     Route: 048
     Dates: start: 19900130
  2. COGENTIN [Concomitant]
     Route: 048
  3. ATENOLOL [Concomitant]
     Route: 048
  4. LASIX [Concomitant]
     Route: 048
  5. ELAVIL [Concomitant]
     Route: 048

REACTIONS (1)
  - GASTROOESOPHAGEAL REFLUX DISEASE [None]
